FAERS Safety Report 8816673 (Version 2)
Quarter: 2013Q1

REPORT INFORMATION
  Report Type: Spontaneous
  Country: US (occurrence: None)
  Receive Date: 20120928
  Receipt Date: 20121015
  Transmission Date: 20140127
  Serious: Yes (Hospitalization, Disabling)
  Sender: FDA-Public Use
  Company Number: UTC-023380

PATIENT
  Age: 71 Year
  Sex: Male

DRUGS (12)
  1. REMODULIN [Suspect]
     Indication: PULMONARY ARTERIAL HYPERTENSION
     Dosage: 41.76 UG/KG (0.029 UG/KG, 1 IN 1 MIN), SUBCUTANEOUS
     Route: 058
     Dates: start: 20111013
  2. ADCIRCA (TADALAFIL) [Concomitant]
  3. TRACLEER (BOSENTAN) [Concomitant]
  4. DOXYCYCLINE [Concomitant]
  5. MORPHINE SULFATE [Concomitant]
  6. METOPROLOL [Concomitant]
  7. FAMOTIDINE [Concomitant]
  8. PROAIR HFA (FLUTICASONE PROPIONATE) [Concomitant]
  9. PREDNISONE [Concomitant]
  10. XOPENEX (LEVOSALBUTAMOL) [Concomitant]
  11. SPIRIVA HANDIHALER (TIOTROPIUM BROMIDE) [Concomitant]
  12. ADVAIR DISKUS (SERETIDE) [Concomitant]

REACTIONS (5)
  - Renal failure [None]
  - Bacteraemia [None]
  - Chronic obstructive pulmonary disease [None]
  - Interstitial lung disease [None]
  - Pulmonary hypertension [None]
